FAERS Safety Report 24234063 (Version 1)
Quarter: 2024Q3

REPORT INFORMATION
  Report Type: Report from Study
  Country: US (occurrence: None)
  Receive Date: 20240821
  Receipt Date: 20240821
  Transmission Date: 20241017
  Serious: Yes (Other)
  Sender: ASTRAZENECA
  Company Number: 2024A185144

PATIENT
  Sex: Male

DRUGS (2)
  1. BREZTRI [Suspect]
     Active Substance: BUDESONIDE\FORMOTEROL\GLYCOPYRROLATE
     Dosage: 160 MCG/9 MCG/4.8 MCG 2 PUFFS
     Route: 055
  2. ROSUVASTATIN [Suspect]
     Active Substance: ROSUVASTATIN\ROSUVASTATIN CALCIUM
     Route: 048

REACTIONS (7)
  - Protein S deficiency [Unknown]
  - General physical condition abnormal [Unknown]
  - Chronic obstructive pulmonary disease [Unknown]
  - Hypertension [Unknown]
  - Arteriosclerosis [Unknown]
  - Drug intolerance [Unknown]
  - Hyperlipidaemia [Unknown]
